FAERS Safety Report 5397187-3 (Version None)
Quarter: 2007Q3

REPORT INFORMATION
  Report Type: 
  Country: None (occurrence: None)
  Receive Date: 20070723
  Receipt Date: 20070710
  Transmission Date: 20080115
  Serious: Yes (Other)
  Sender: FDA-Public Use
  Company Number: 2007326342

PATIENT
  Age: 63 Year
  Sex: Male

DRUGS (5)
  1. BENADRYL [Suspect]
     Indication: PROPHYLAXIS
  2. DRUG UNSPECIFIED (DRUG, UNSPECIFIED) [Suspect]
     Indication: COLON CANCER
     Dosage: UNSPECIFIED EVERY TWO WEEKS, INTRAVENOUS
     Route: 042
  3. LORAZEPAM [Concomitant]
  4. OLANZAPINE [Concomitant]
  5. XELODA [Concomitant]

REACTIONS (3)
  - AGITATION [None]
  - ANXIETY [None]
  - PAIN [None]
